FAERS Safety Report 8449893-1 (Version None)
Quarter: 2012Q2

REPORT INFORMATION
  Report Type: 
  Country: None (occurrence: None)
  Receive Date: 20120620
  Receipt Date: 20120608
  Transmission Date: 20120825
  Serious: Yes (Hospitalization)
  Sender: FDA-Public Use
  Company Number: FR-JNJFOC-20120606496

PATIENT
  Sex: Male

DRUGS (2)
  1. OXAZEPAM [Concomitant]
     Indication: PRODUCT USED FOR UNKNOWN INDICATION
     Dosage: 30 TABLETS OF 50 MG
     Route: 065
  2. RISPERDAL [Suspect]
     Indication: SUICIDE ATTEMPT
     Route: 048
     Dates: start: 20120502, end: 20120502

REACTIONS (8)
  - DYSPHAGIA [None]
  - TACHYCARDIA [None]
  - INTENTIONAL OVERDOSE [None]
  - ASTHENIA [None]
  - DIZZINESS [None]
  - MUSCULOSKELETAL STIFFNESS [None]
  - SOMNOLENCE [None]
  - DYSPNOEA [None]
